FAERS Safety Report 25735969 (Version 1)
Quarter: 2025Q3

REPORT INFORMATION
  Report Type: Spontaneous
  Country: TR (occurrence: TR)
  Receive Date: 20250828
  Receipt Date: 20250828
  Transmission Date: 20251021
  Serious: Yes (Death, Hospitalization, Other)
  Sender: Medicap Laboratories
  Company Number: TR-Medicap-000032

PATIENT
  Age: 17 Year
  Sex: Male

DRUGS (1)
  1. METFORMIN [Suspect]
     Active Substance: METFORMIN HYDROCHLORIDE
     Indication: Product used for unknown indication
     Route: 065

REACTIONS (8)
  - Rhabdomyolysis [Fatal]
  - Cardiac arrest [Fatal]
  - Toxicity to various agents [Fatal]
  - Diabetic ketoacidosis [Fatal]
  - Coagulopathy [Fatal]
  - Multiple organ dysfunction syndrome [Fatal]
  - Hyperkalaemia [Fatal]
  - Lactic acidosis [Fatal]
